FAERS Safety Report 8897413 (Version 1)
Quarter: 2012Q4

REPORT INFORMATION
  Report Type: 
  Country: US (occurrence: US)
  Receive Date: 20121108
  Receipt Date: 20121108
  Transmission Date: 20130627
  Serious: No
  Sender: FDA-Public Use
  Company Number: US-AMGEN-USASP2012025824

PATIENT
  Age: 63 Year
  Sex: Female

DRUGS (13)
  1. ENBREL [Suspect]
     Indication: PRODUCT USED FOR UNKNOWN INDICATION
     Dosage: 25 mg, 2 times/wk
     Route: 058
  2. PAXIL [Concomitant]
     Dosage: 10 mg, UNK
  3. TOPAMAX [Concomitant]
     Dosage: 25 mg, UNK
  4. METHOTREXATE [Concomitant]
     Dosage: 2.5 mg, UNK
  5. SIMVASTATIN [Concomitant]
     Dosage: 10 mg, UNK
  6. FOLIC ACID [Concomitant]
     Dosage: 1 mg, UNK
  7. VITAMIN E                          /00110501/ [Concomitant]
     Dosage: 1000 IU, UNK
  8. ESTRACE VAGINAL [Concomitant]
     Dosage: 0.1 UNK, UNK
  9. BLACK COHOSH                       /01456801/ [Concomitant]
     Dosage: 40 mg, UNK
  10. COPPER [Concomitant]
     Dosage: 2 mg, UNK
  11. CALCIUM + VIT D [Concomitant]
     Dosage: UNK
  12. BETA CAROTENE [Concomitant]
     Dosage: 30 mg, UNK
  13. HYDROCHLOROTHIAZIDE W/TRIAMTERENE [Concomitant]
     Dosage: UNK

REACTIONS (1)
  - Injection site urticaria [Unknown]
